FAERS Safety Report 4665607-5 (Version None)
Quarter: 2005Q2

REPORT INFORMATION
  Report Type: 
  Country: None (occurrence: None)
  Receive Date: 20050517
  Receipt Date: 20050324
  Transmission Date: 20051028
  Serious: No
  Sender: FDA-Public Use
  Company Number: S05-USA-01607-01

PATIENT
  Age: 61 Year
  Sex: Female

DRUGS (11)
  1. NAMENDA [Suspect]
     Indication: DEMENTIA ALZHEIMER'S TYPE
     Dosage: 5 MG QD PO
     Route: 048
     Dates: start: 20050312, end: 20050318
  2. NAMENDA [Suspect]
     Indication: DEMENTIA ALZHEIMER'S TYPE
     Dosage: 10 MG QD PO
     Route: 048
     Dates: start: 20050319
  3. EXELON [Concomitant]
  4. CELEXA [Concomitant]
  5. FOSAMAX [Concomitant]
  6. SYNTHROID [Concomitant]
  7. BETA CAROTENE [Concomitant]
  8. CENTRUM [Concomitant]
  9. VITAMIN E [Concomitant]
  10. CALCIUM GLUCONATE [Concomitant]
  11. ASCORBIC ACID [Concomitant]

REACTIONS (1)
  - ASTHENIA [None]
